FAERS Safety Report 14241373 (Version 2)
Quarter: 2017Q4

REPORT INFORMATION
  Report Type: Report from Study
  Country: US (occurrence: US)
  Receive Date: 20171130
  Receipt Date: 20171230
  Transmission Date: 20180321
  Serious: No
  Sender: FDA-Public Use
  Company Number: PHEH2017US038610

PATIENT
  Age: 37 Year
  Sex: Female

DRUGS (1)
  1. GILENYA [Suspect]
     Active Substance: FINGOLIMOD HYDROCHLORIDE
     Indication: MULTIPLE SCLEROSIS
     Dosage: 0.5 MG, BID (EVERY NIGHT AT 21:00 AND EVERY MORNING AROUND 06:00)
     Route: 048
     Dates: start: 201709

REACTIONS (3)
  - Gastrointestinal sounds abnormal [Recovering/Resolving]
  - Diarrhoea [Recovering/Resolving]
  - Weight decreased [Unknown]

NARRATIVE: CASE EVENT DATE: 201709
